FAERS Safety Report 5763497-0 (Version None)
Quarter: 2008Q2

REPORT INFORMATION
  Report Type: 
  Country: None (occurrence: None)
  Receive Date: 20080529
  Receipt Date: 20080417
  Transmission Date: 20081010
  Serious: Yes (Other)
  Sender: FDA-Public Use
  Company Number: FLCT20080101

PATIENT
  Age: 60 Year
  Sex: Female

DRUGS (1)
  1. FLECTOR [Suspect]
     Indication: BACK PAIN
     Dosage: 1 PATCH BID, TOPICAL
     Route: 061
     Dates: start: 20080301, end: 20080301

REACTIONS (1)
  - ANAPHYLACTIC REACTION [None]
